FAERS Safety Report 4394855-7 (Version None)
Quarter: 2004Q3

REPORT INFORMATION
  Report Type: 
  Country: None (occurrence: None)
  Receive Date: 20040707
  Receipt Date: 20040624
  Transmission Date: 20050211
  Serious: Yes (Life-Threatening)
  Sender: FDA-Public Use
  Company Number: 04P-087-0264836-00

PATIENT
  Age: 48 Year
  Sex: Male

DRUGS (4)
  1. BIAXIN [Suspect]
     Indication: HELICOBACTER INFECTION
     Dosage: 400 MG, 2 IN 1 D; PER ORAL
     Route: 048
     Dates: start: 20040517, end: 20040519
  2. LANSOPRAZOLE [Suspect]
     Indication: HELICOBACTER INFECTION
     Dosage: 30 MG, 2 IN 1 D; PER ORAL
     Route: 048
     Dates: start: 20040517, end: 20040519
  3. AMOXICILLIN TRIHYDRATE [Suspect]
     Indication: HELICOBACTER INFECTION
     Dosage: 750 MG, 2 IN 1 D; PER ORAL
     Route: 048
     Dates: start: 20040517, end: 20040519
  4. POLAPREZINC [Concomitant]

REACTIONS (6)
  - BONE MARROW DEPRESSION [None]
  - DISSEMINATED INTRAVASCULAR COAGULATION [None]
  - HEPATITIS ACUTE [None]
  - HYPERSENSITIVITY [None]
  - RENAL IMPAIRMENT [None]
  - SHOCK [None]
